FAERS Safety Report 8227307-4 (Version None)
Quarter: 2012Q1

REPORT INFORMATION
  Report Type: 
  Country: None (occurrence: None)
  Receive Date: 20120322
  Receipt Date: 20120319
  Transmission Date: 20120608
  Serious: Yes (Death, Hospitalization, Other)
  Sender: FDA-Public Use
  Company Number: PHHY2012MX024167

PATIENT
  Sex: Female

DRUGS (1)
  1. STALEVO 100 [Suspect]
     Indication: PARKINSON'S DISEASE
     Dosage: 4 DF, DAILY
     Route: 048
     Dates: start: 20090401

REACTIONS (4)
  - INTESTINAL OBSTRUCTION [None]
  - SEPSIS [None]
  - DEATH [None]
  - VISUAL FIELD DEFECT [None]
